FAERS Safety Report 8947321 (Version 1)
Quarter: 2012Q4

REPORT INFORMATION
  Report Type: 
  Country: ES (occurrence: ES)
  Receive Date: 20121205
  Receipt Date: 20121205
  Transmission Date: 20130627
  Serious: Yes (Hospitalization)
  Sender: FDA-Public Use
  Company Number: ES-PFIZER INC-2012290719

PATIENT
  Age: 69 Year
  Sex: Male

DRUGS (6)
  1. ALDACTONE [Suspect]
     Indication: HEPATIC CIRRHOSIS
     Dosage: 100 mg, 1x/day
     Route: 048
     Dates: start: 201107, end: 20120524
  2. KARVEZIDE [Interacting]
     Indication: HYPERTENSION
     Dosage: 12.5 mg/ 150 mg
     Route: 048
     Dates: start: 2003, end: 20120524
  3. ONBREZ [Interacting]
     Dosage: 150 ug, daily
     Route: 055
     Dates: start: 201203, end: 20120524
  4. METFORMIN [Concomitant]
     Indication: TYPE 2 DIABETES MELLITUS
     Dosage: UNK
     Route: 048
     Dates: start: 2003
  5. FUROSEMIDE [Concomitant]
     Indication: CARDIAC FAILURE
     Dosage: 40 mg, daily
     Route: 048
     Dates: start: 2003
  6. SIMVASTATIN [Concomitant]
     Indication: DYSLIPIDEMIA
     Dosage: 20 mg, daily
     Route: 048
     Dates: start: 2003

REACTIONS (5)
  - Drug interaction [Recovered/Resolved]
  - Atrioventricular block complete [Recovered/Resolved]
  - Hyperkalaemia [Recovered/Resolved]
  - Ventricular extrasystoles [Recovered/Resolved]
  - Bundle branch block right [None]
